FAERS Safety Report 5369835-5 (Version None)
Quarter: 2007Q2

REPORT INFORMATION
  Report Type: 
  Country: None (occurrence: None)
  Receive Date: 20070531
  Receipt Date: 20070521
  Transmission Date: 20071010
  Serious: Yes (Disabling, Other)
  Sender: FDA-Public Use
  Company Number: 200710144BBE

PATIENT
  Age: 27 Year
  Sex: Male
  Weight: 79.9 kg

DRUGS (42)
  1. HELIXATE [Suspect]
     Indication: FACTOR VIII DEFICIENCY
     Dosage: 8000 IU, TOTAL DAILY
     Dates: start: 20040714
  2. HELIXATE [Suspect]
     Dosage: 7000 IU, TOTAL DAILY
     Dates: start: 20040826
  3. HELIXATE [Suspect]
     Dosage: 42000 IU, TOTAL DAILY
     Dates: start: 20040902
  4. HELIXATE [Suspect]
     Dosage: 7000 IU, TOTAL DAILY
  5. HELIXATE [Suspect]
     Dosage: 28000 IU, TOTAL DAILY
     Dates: start: 20041109
  6. HELIXATE [Suspect]
     Dosage: 28000 IU, TOTAL DAILY
     Dates: start: 20041220
  7. HELIXATE [Suspect]
     Dosage: SEE IMAGE
     Dates: start: 20050120
  8. HELIXATE [Suspect]
     Dosage: SEE IMAGE
     Dates: start: 20050219
  9. HELIXATE [Suspect]
     Dosage: 56000 IU, TOTAL DAILY
     Dates: start: 20050322
  10. HELIXATE [Suspect]
     Dosage: 56000 IU, TOTAL DAILY
     Dates: start: 20050512
  11. HELIXATE [Suspect]
     Dosage: 60000 IU, TOTAL DAILY
     Dates: start: 20050707
  12. HELIXATE [Suspect]
     Dosage: 56000 IU, TOTAL DAILY
     Dates: start: 20050908
  13. HELIXATE [Suspect]
     Dosage: 560000 IU, TOTAL DAILY
     Dates: start: 20051027
  14. HELIXATE [Suspect]
     Dosage: 560000 IU, TOTAL DAILY
     Dates: start: 20051220
  15. HELIXATE [Suspect]
     Dosage: 56000 IU, TOTAL DAILY
     Dates: start: 20060216
  16. HELIXATE [Suspect]
     Dosage: SEE IMAGE
     Dates: start: 20060419
  17. HELIXATE [Suspect]
     Dosage: SEE IMAGE
     Dates: start: 20060504
  18. HELIXATE [Suspect]
     Dosage: SEE IMAGE
     Dates: start: 20060510
  19. HELIXATE [Suspect]
     Dosage: SEE IMAGE
     Dates: start: 20060512
  20. HELIXATE [Suspect]
     Dosage: SEE IMAGE
     Dates: start: 20060515
  21. HELIXATE [Suspect]
     Dosage: SEE IMAGE
     Dates: start: 20060517
  22. HELIXATE [Suspect]
     Dosage: SEE IMAGE
     Dates: start: 20060519
  23. HELIXATE [Suspect]
     Dosage: SEE IMAGE
     Dates: start: 20060522
  24. HELIXATE [Suspect]
     Dosage: SEE IMAGE
     Dates: start: 20060524
  25. HELIXATE [Suspect]
     Dosage: SEE IMAGE
     Dates: start: 20060526
  26. HELIXATE [Suspect]
     Dosage: SEE IMAGE
     Dates: start: 20060529
  27. HELIXATE [Suspect]
     Dosage: SEE IMAGE
     Dates: start: 20060531
  28. HELIXATE [Suspect]
     Dosage: SEE IMAGE
     Dates: start: 20060602
  29. HELIXATE [Suspect]
     Dosage: SEE IMAGE
     Dates: start: 20060605
  30. HELIXATE [Suspect]
     Dosage: SEE IMAGE
     Dates: start: 20060607
  31. HELIXATE [Suspect]
     Dosage: SEE IMAGE
     Dates: start: 20060609
  32. HELIXATE [Suspect]
     Dosage: SEE IMAGE
     Dates: start: 20060612
  33. HELIXATE [Suspect]
     Dosage: SEE IMAGE
     Dates: start: 20060614
  34. HELIXATE [Suspect]
     Dosage: SEE IMAGE
     Dates: start: 20060616
  35. HELIXATE [Suspect]
     Dosage: SEE IMAGE
     Dates: start: 20060617
  36. HELIXATE [Suspect]
     Dosage: SEE IMAGE
     Dates: start: 20060619
  37. HELIXATE [Suspect]
     Dosage: SEE IMAGE
     Dates: start: 20060630
  38. HELIXATE [Suspect]
     Dosage: SEE IMAGE
     Dates: start: 20061129
  39. HELIXATE [Suspect]
     Dosage: 63000 IU, TOTAL DAILY
     Dates: start: 20060831
  40. HELIXATE [Suspect]
     Dosage: 56000 IU, TOTAL DAILY
     Dates: start: 20061026
  41. HELIXATE [Suspect]
     Dosage: 56000 IU, TOTAL DAILY
     Dates: start: 20061221
  42. RECOMBINATE [Concomitant]

REACTIONS (1)
  - FACTOR VIII INHIBITION [None]
